FAERS Safety Report 4605859-0 (Version None)
Quarter: 2005Q1

REPORT INFORMATION
  Report Type: 
  Country: None (occurrence: None)
  Receive Date: 20050311
  Receipt Date: 20050308
  Transmission Date: 20050727
  Serious: Yes (Other)
  Sender: FDA-Public Use
  Company Number: PHBS2005BE03390

PATIENT
  Sex: Male

DRUGS (4)
  1. LAMISIL [Suspect]
     Indication: NAIL TINEA
     Dosage: 250 MG, QD
     Route: 048
     Dates: start: 20050201, end: 20050301
  2. PROLOPA [Concomitant]
     Dosage: 250 MG, TID
  3. BUDENOFALK [Concomitant]
  4. ALDACTAZINE [Concomitant]

REACTIONS (2)
  - SYNCOPE [None]
  - VISUAL DISTURBANCE [None]
